FAERS Safety Report 9691236 (Version 1)
Quarter: 2013Q4

REPORT INFORMATION
  Report Type: Report from Study
  Country: US (occurrence: US)
  Receive Date: 20131115
  Receipt Date: 20131115
  Transmission Date: 20140711
  Serious: Yes (Other)
  Sender: FDA-Public Use
  Company Number: US-ROCHE-1301875

PATIENT
  Age: 58 Year
  Sex: Female
  Weight: 59.47 kg

DRUGS (4)
  1. NUTROPIN [Suspect]
     Indication: GROWTH HORMONE DEFICIENCY
     Route: 058
  2. ARMOUR THYROID [Concomitant]
     Route: 048
  3. LEVOTHYROXINE [Concomitant]
     Route: 048
     Dates: end: 20130926
  4. LEVOTHYROXINE [Concomitant]
     Route: 048
     Dates: start: 20130926

REACTIONS (2)
  - Tri-iodothyronine increased [Unknown]
  - Tri-iodothyronine free [Unknown]
